FAERS Safety Report 5092071-7 (Version None)
Quarter: 2006Q3

REPORT INFORMATION
  Report Type: 
  Country: None (occurrence: None)
  Receive Date: 20060825
  Receipt Date: 20060814
  Transmission Date: 20061208
  Serious: Yes (Death, Hospitalization)
  Sender: FDA-Public Use
  Company Number: SPV1-2006-00419

PATIENT
  Age: 22 Year
  Sex: Female

DRUGS (2)
  1. CARBAMAZEPINE [Suspect]
     Indication: CONVULSION
  2. LEVETIRACETAM [Suspect]
     Indication: CONVULSION

REACTIONS (6)
  - ANTICONVULSANT DRUG LEVEL BELOW THERAPEUTIC [None]
  - DRUG TOXICITY [None]
  - HEPATIC FAILURE [None]
  - RENAL TUBULAR NECROSIS [None]
  - SHOCK [None]
  - STATUS EPILEPTICUS [None]
